FAERS Safety Report 7887856-5 (Version None)
Quarter: 2011Q4

REPORT INFORMATION
  Report Type: 
  Country: None (occurrence: None)
  Receive Date: 20111103
  Receipt Date: 20111101
  Transmission Date: 20120403
  Serious: Yes (Death, Other)
  Sender: FDA-Public Use
  Company Number: US-AMGEN-USASP2011021947

PATIENT
  Sex: Female

DRUGS (3)
  1. DANAZOL [Concomitant]
  2. NPLATE [Suspect]
     Indication: IDIOPATHIC THROMBOCYTOPENIC PURPURA
     Dates: start: 20090113
  3. NPLATE [Suspect]
     Indication: AUTOIMMUNE THROMBOCYTOPENIA

REACTIONS (2)
  - DRUG INEFFECTIVE [None]
  - DEATH [None]
